FAERS Safety Report 5382593-3 (Version None)
Quarter: 2007Q3

REPORT INFORMATION
  Report Type: 
  Country: None (occurrence: None)
  Receive Date: 20070710
  Receipt Date: 20070629
  Transmission Date: 20080115
  Serious: Yes (Other)
  Sender: FDA-Public Use
  Company Number: PHBS2007BR09658

PATIENT
  Age: 6 Year
  Sex: Male
  Weight: 21.4 kg

DRUGS (2)
  1. TRILEPTAL [Suspect]
     Indication: CONVULSION
     Dosage: 300 MG, UNK
     Route: 048
     Dates: start: 20070531
  2. TEGRETOL [Suspect]
     Indication: CONVULSION
     Dosage: 300 MG, UNK
     Route: 048
     Dates: start: 20050101

REACTIONS (2)
  - ANAEMIA [None]
  - CONVULSION [None]
